FAERS Safety Report 9491901 (Version 1)
Quarter: 2013Q3

REPORT INFORMATION
  Report Type: Spontaneous
  Country: US (occurrence: US)
  Receive Date: 20130830
  Receipt Date: 20130830
  Transmission Date: 20140515
  Serious: No
  Sender: FDA-Public Use
  Company Number: US-BAYER-2013-102600

PATIENT
  Age: 59 Year
  Sex: Male

DRUGS (2)
  1. CLOTRIMAZOLE [Suspect]
     Indication: OTITIS EXTERNA FUNGAL
     Dosage: 4 DROPS THREE TIMES A DAY
     Route: 001
  2. IBUPROFEN [Suspect]
     Indication: EAR PAIN
     Route: 048

REACTIONS (4)
  - Ear pain [Recovered/Resolved]
  - Dysgeusia [None]
  - Drug ineffective [None]
  - Inappropriate schedule of drug administration [None]
